FAERS Safety Report 15572850 (Version 1)
Quarter: 2018Q4

REPORT INFORMATION
  Report Type: Report from Study
  Country: None (occurrence: RO)
  Receive Date: 20181031
  Receipt Date: 20181031
  Transmission Date: 20190205
  Serious: Yes (Disabling)
  Sender: FDA-Public Use
  Company Number: RO-ABBVIE-18K-135-2537968-00

PATIENT
  Age: 72 Year
  Sex: Female

DRUGS (7)
  1. HUMIRA [Suspect]
     Active Substance: ADALIMUMAB
     Indication: PSORIASIS
     Route: 058
     Dates: start: 20150915
  2. STIMULOTON [Concomitant]
     Indication: INSOMNIA
  3. TENOX (TEMAZEPAM) [Concomitant]
     Active Substance: TEMAZEPAM
     Indication: STRESS
     Route: 048
  4. CONCOR [Concomitant]
     Active Substance: BISOPROLOL FUMARATE
     Indication: STRESS
     Route: 048
  5. STIMULOTON [Concomitant]
     Indication: STRESS
     Route: 048
  6. CONCOR [Concomitant]
     Active Substance: BISOPROLOL FUMARATE
     Indication: HYPERTENSION
  7. TENOX (TEMAZEPAM) [Concomitant]
     Active Substance: TEMAZEPAM
     Indication: HYPERTENSION

REACTIONS (2)
  - Joint dislocation [Not Recovered/Not Resolved]
  - Fall [Unknown]

NARRATIVE: CASE EVENT DATE: 20181028
